FAERS Safety Report 13967256 (Version 1)
Quarter: 2017Q3

REPORT INFORMATION
  Report Type: Spontaneous
  Country: US (occurrence: US)
  Receive Date: 20170914
  Receipt Date: 20170914
  Transmission Date: 20171128
  Serious: Yes (Hospitalization)
  Sender: FDA-Public Use
  Company Number: None

PATIENT
  Age: 58 Year
  Sex: Female
  Weight: 74 kg

DRUGS (2)
  1. VELCADE [Concomitant]
     Active Substance: BORTEZOMIB
  2. REVLIMID [Suspect]
     Active Substance: LENALIDOMIDE
     Indication: PLASMA CELL MYELOMA
     Route: 048
     Dates: start: 20170725, end: 20170822

REACTIONS (2)
  - Drug eruption [None]
  - Polyarthritis [None]

NARRATIVE: CASE EVENT DATE: 20170822
